FAERS Safety Report 16287649 (Version 1)
Quarter: 2019Q2

REPORT INFORMATION
  Report Type: Spontaneous
  Country: US (occurrence: US)
  Receive Date: 20190508
  Receipt Date: 20190508
  Transmission Date: 20190711
  Serious: No
  Sender: FDA-Public Use
  Company Number: US-ASTRAZENECA-2019SE56649

PATIENT
  Age: 28279 Day
  Sex: Female
  Weight: 74.8 kg

DRUGS (3)
  1. ROSUVASTATIN. [Suspect]
     Active Substance: ROSUVASTATIN
     Indication: BLOOD CHOLESTEROL ABNORMAL
     Route: 048
     Dates: start: 2019
  2. VITAMINS NOS [Concomitant]
     Active Substance: VITAMINS
  3. IBUPROFEN. [Concomitant]
     Active Substance: IBUPROFEN

REACTIONS (1)
  - Coeliac disease [Recovering/Resolving]

NARRATIVE: CASE EVENT DATE: 20190301
